FAERS Safety Report 4839579-4 (Version None)
Quarter: 2005Q4

REPORT INFORMATION
  Report Type: 
  Country: None (occurrence: None)
  Receive Date: 20051128
  Receipt Date: 20051128
  Transmission Date: 20060501
  Serious: Yes (Life-Threatening, Hospitalization)
  Sender: FDA-Public Use
  Company Number: None

PATIENT
  Age: 50 Year
  Sex: Male
  Weight: 111.9 kg

DRUGS (2)
  1. WARFARIN    5MG [Suspect]
     Dosage: 7.5MG   QD   PO
     Route: 048
  2. SEPTRA [Suspect]

REACTIONS (12)
  - CEREBROVASCULAR ACCIDENT [None]
  - CHILLS [None]
  - COAGULOPATHY [None]
  - DRUG INTERACTION [None]
  - DYSPNOEA EXERTIONAL [None]
  - HAEMOPTYSIS [None]
  - HEMIPARESIS [None]
  - INTERNATIONAL NORMALISED RATIO INCREASED [None]
  - MYOCARDIAL INFARCTION [None]
  - ORTHOPNOEA [None]
  - PNEUMONIA [None]
  - PYREXIA [None]
